FAERS Safety Report 22823242 (Version 2)
Quarter: 2024Q1

REPORT INFORMATION
  Report Type: Report from Study
  Country: US (occurrence: US)
  Receive Date: 20230815
  Receipt Date: 20240314
  Transmission Date: 20240410
  Serious: Yes (Death)
  Sender: FDA-Public Use
  Company Number: US-ARGENX-2023-ARGX-US002704

PATIENT

DRUGS (1)
  1. VYVGART [Suspect]
     Active Substance: EFGARTIGIMOD ALFA-FCAB
     Indication: Myasthenia gravis
     Dosage: 20 MG/ML
     Route: 042
     Dates: start: 20221222, end: 20230120

REACTIONS (1)
  - Death [Fatal]
